FAERS Safety Report 18152682 (Version 3)
Quarter: 2021Q1

REPORT INFORMATION
  Report Type: Spontaneous
  Country: US (occurrence: US)
  Receive Date: 20200814
  Receipt Date: 20210112
  Transmission Date: 20210419
  Serious: No
  Sender: FDA-Public Use
  Company Number: US-PFIZER INC-2020313233

PATIENT
  Age: 87 Year
  Sex: Female
  Weight: 54 kg

DRUGS (3)
  1. LYRICA [Suspect]
     Active Substance: PREGABALIN
     Indication: NEURALGIA
     Dosage: 150 MG, DAILY (2?75MG CAPSULES TAKEN DAILY: MORNING AND NIGHT)
     Dates: start: 201701
  2. LYRICA [Suspect]
     Active Substance: PREGABALIN
     Indication: MEMORY IMPAIRMENT
     Dosage: 200 MG, DAILY(2?100MG CAPSULES TAKEN DAILY: MORNING AND NIGHT)
  3. XARELTO [Concomitant]
     Active Substance: RIVAROXABAN
     Indication: THROMBOSIS
     Dosage: 20 MG, 2X/DAY (20MG TAKEN TWICE DAILY: MORNING AND NIGHT)
     Dates: end: 2020

REACTIONS (3)
  - Condition aggravated [Unknown]
  - Neuralgia [Unknown]
  - Drug ineffective [Unknown]
